FAERS Safety Report 5898866-1 (Version None)
Quarter: 2008Q3

REPORT INFORMATION
  Report Type: 
  Country: None (occurrence: None)
  Receive Date: 20080925
  Receipt Date: 20080910
  Transmission Date: 20090109
  Serious: Yes (Hospitalization)
  Sender: FDA-Public Use
  Company Number: IT-ROCHE-571230

PATIENT
  Sex: Male
  Weight: 88 kg

DRUGS (3)
  1. PEGASYS [Suspect]
     Route: 065
     Dates: start: 20050427, end: 20070412
  2. RIBAVIRIN [Suspect]
     Route: 065
     Dates: start: 20050427, end: 20070412
  3. RAMIPRIL [Concomitant]
     Indication: HYPERTENSION

REACTIONS (3)
  - CHOLESTASIS [None]
  - TRANSAMINASES INCREASED [None]
  - TRANSPLANT REJECTION [None]
